FAERS Safety Report 7146048-8 (Version None)
Quarter: 2010Q4

REPORT INFORMATION
  Report Type: 
  Country: None (occurrence: None)
  Receive Date: 20101208
  Receipt Date: 20101129
  Transmission Date: 20110411
  Serious: Yes (Hospitalization)
  Sender: FDA-Public Use
  Company Number: JP-BRISTOL-MYERS SQUIBB COMPANY-15414147

PATIENT
  Age: 69 Year
  Sex: Female
  Weight: 44 kg

DRUGS (3)
  1. BRIPLATIN [Suspect]
     Indication: LUNG ADENOCARCINOMA STAGE IV
     Route: 041
  2. IFOSFAMIDE [Suspect]
     Indication: LUNG ADENOCARCINOMA STAGE IV
     Dosage: INJ
  3. VINDESINE [Suspect]
     Indication: LUNG ADENOCARCINOMA STAGE IV
     Dosage: INJ:DAY 1 AND 7

REACTIONS (1)
  - INAPPROPRIATE ANTIDIURETIC HORMONE SECRETION [None]
